FAERS Safety Report 6710195-2 (Version None)
Quarter: 2010Q2

REPORT INFORMATION
  Report Type: 
  Country: None (occurrence: None)
  Receive Date: 20100504
  Receipt Date: 20100426
  Transmission Date: 20101027
  Serious: Yes (Hospitalization)
  Sender: FDA-Public Use
  Company Number: US-CELGENEUS-163-FK228-10042274

PATIENT
  Sex: Female

DRUGS (1)
  1. ROMIDEPSIN [Suspect]
     Route: 065

REACTIONS (6)
  - ANAEMIA [None]
  - ATRIAL FIBRILLATION [None]
  - CONFUSIONAL STATE [None]
  - ELECTROCARDIOGRAM T WAVE ABNORMAL [None]
  - HYPOPHAGIA [None]
  - SEPTIC SHOCK [None]
